FAERS Safety Report 8046435-X (Version None)
Quarter: 2012Q1

REPORT INFORMATION
  Report Type: 
  Country: None (occurrence: None)
  Receive Date: 20120113
  Receipt Date: 20120104
  Transmission Date: 20120608
  Serious: Yes (Other)
  Sender: FDA-Public Use
  Company Number: GB-ASTRAZENECA-2012SE00512

PATIENT
  Age: 28 Year
  Sex: Female

DRUGS (17)
  1. AZITHROMYCIN [Concomitant]
     Route: 048
  2. ALBUTEROL SULFATE AUTOHALER [Concomitant]
     Dosage: 12
     Route: 050
  3. FLUTICASONE PROPIONATE/SALMETEROL [Concomitant]
     Route: 055
  4. FERROUS FUMARATE [Concomitant]
     Route: 048
  5. LACTULOSE [Concomitant]
     Route: 048
  6. MEROPENEM [Suspect]
     Indication: INFECTION
     Route: 042
     Dates: start: 20111216
  7. OMEPRAZOLE [Concomitant]
     Route: 048
  8. MULTI-VITAMIN [Concomitant]
     Route: 048
  9. RISEDRONATE SODIUM [Concomitant]
     Route: 048
  10. TOBRAMYCIN [Concomitant]
  11. CREON [Concomitant]
     Route: 048
  12. FLUTICASONE PROPIONATE [Concomitant]
     Route: 045
  13. SODIUM CHLORIDE [Concomitant]
     Dosage: FOUR TIMES A DAY
     Route: 050
  14. STELLISEPT [Concomitant]
     Route: 061
  15. VITAMIN E [Concomitant]
     Route: 048
  16. CALCIUM CARBONATE [Concomitant]
     Route: 048
  17. PULMOZYME [Concomitant]
     Route: 050

REACTIONS (1)
  - PAIN IN EXTREMITY [None]
